FAERS Safety Report 18665279 (Version 1)
Quarter: 2020Q4

REPORT INFORMATION
  Report Type: Report from Study
  Country: DE (occurrence: DE)
  Receive Date: 20201225
  Receipt Date: 20201225
  Transmission Date: 20210114
  Serious: Yes (Hospitalization)
  Sender: FDA-Public Use
  Company Number: DE-SHIRE-DE201908326

PATIENT
  Sex: Male
  Weight: 78 kg

DRUGS (51)
  1. TEDUGLUTIDE [Suspect]
     Active Substance: TEDUGLUTIDE
     Dosage: 2.7 MILLIGRAM, (0.03 MG/KG), 7 DOSES PER WEEK
     Route: 058
     Dates: start: 20190807, end: 20191002
  2. TEDUGLUTIDE [Suspect]
     Active Substance: TEDUGLUTIDE
     Dosage: 2.7 MILLIGRAM, (0.03 MG/KG), 7 DOSES PER WEEK
     Route: 058
     Dates: start: 20191003
  3. NEXIUM [Concomitant]
     Active Substance: ESOMEPRAZOLE MAGNESIUM
     Indication: GASTROENTERITIS
  4. NOVAMINOSULFON [Concomitant]
     Active Substance: METAMIZOLE SODIUM
     Indication: GASTROENTERITIS
  5. VIGANTOL [COLECALCIFEROL] [Concomitant]
     Active Substance: CHOLECALCIFEROL
     Indication: VITAMIN SUPPLEMENTATION
  6. TEDUGLUTIDE [Suspect]
     Active Substance: TEDUGLUTIDE
     Indication: SHORT-BOWEL SYNDROME
     Dosage: 3.8 MILLIGRAM, (0.05 MG/KG), 7 DOSES PER WEEK
     Route: 058
     Dates: start: 20150511, end: 20150911
  7. TEDUGLUTIDE [Suspect]
     Active Substance: TEDUGLUTIDE
     Dosage: 2 MILLIGRAM, (0.03 MG/KG), 3 DOSES PER WEEK
     Route: 058
     Dates: start: 20150925, end: 20151001
  8. TEDUGLUTIDE [Suspect]
     Active Substance: TEDUGLUTIDE
     Dosage: 2.00 MILLIGRAM, (0.03 MG/KG), 4 DOSES PER WEEK
     Route: 058
     Dates: start: 20151002, end: 20151008
  9. TEDUGLUTIDE [Suspect]
     Active Substance: TEDUGLUTIDE
     Dosage: 2.00 MILLIGRAM, (0.03 MG/KG), 4 DOSES PER WEEK
     Route: 058
     Dates: start: 20151009, end: 20151015
  10. TEDUGLUTIDE [Suspect]
     Active Substance: TEDUGLUTIDE
     Dosage: 2.7 MILLIGRAM, (0.03 MG/KG), 7 DOSES PER WEEK
     Route: 058
     Dates: start: 201907, end: 20190806
  11. TEDUGLUTIDE [Suspect]
     Active Substance: TEDUGLUTIDE
     Dosage: 2.7 MILLIGRAM, (0.03 MG/KG), 7 DOSES PER WEEK
     Route: 058
     Dates: start: 20191003
  12. TEDUGLUTIDE [Suspect]
     Active Substance: TEDUGLUTIDE
     Indication: SHORT-BOWEL SYNDROME
     Dosage: 3.8 MILLIGRAM, (0.05 MG/KG), 7 DOSES PER WEEK
     Route: 058
     Dates: start: 20150511, end: 20150911
  13. TEDUGLUTIDE [Suspect]
     Active Substance: TEDUGLUTIDE
     Dosage: 2 MILLIGRAM, (0.03 MG/KG), 3 DOSES PER WEEK
     Route: 058
     Dates: start: 20150925, end: 20151001
  14. TEDUGLUTIDE [Suspect]
     Active Substance: TEDUGLUTIDE
     Dosage: 2.00 MILLIGRAM, (0.03 MG/KG), 4 DOSES PER WEEK
     Route: 058
     Dates: start: 20151009, end: 20151015
  15. TEDUGLUTIDE [Suspect]
     Active Substance: TEDUGLUTIDE
     Dosage: 2.5 MILLIGRAM, (0.03 MG/KG), 7 DOSES PER WEEK UNK
     Route: 058
     Dates: start: 20160419, end: 20161026
  16. TEDUGLUTIDE [Suspect]
     Active Substance: TEDUGLUTIDE
     Dosage: 2.5 MILLIGRAM, (0.03 MG/KG), 7 DOSES PER WEEK UNK
     Route: 058
     Dates: start: 20160419, end: 20161026
  17. TEDUGLUTIDE [Suspect]
     Active Substance: TEDUGLUTIDE
     Dosage: 2.7 MILLIGRAM, (0.03 MG/KG), 7 DOSES PER WEEK
     Route: 058
     Dates: start: 20191003
  18. GENTAMICIN. [Concomitant]
     Active Substance: GENTAMICIN
     Indication: ENDOCARDITIS
  19. TEDUGLUTIDE [Suspect]
     Active Substance: TEDUGLUTIDE
     Dosage: 2.00 MILLIGRAM, (0.03 MG/KG), 4 DOSES PER WEEK
     Route: 058
     Dates: start: 20150918, end: 20150924
  20. TEDUGLUTIDE [Suspect]
     Active Substance: TEDUGLUTIDE
     Dosage: 2.00 MILLIGRAM, (0.03 MG/KG), 4 DOSES PER WEEK
     Route: 058
     Dates: start: 20151002, end: 20151008
  21. TEDUGLUTIDE [Suspect]
     Active Substance: TEDUGLUTIDE
     Dosage: 2.00 MILLIGRAM, (0.03 MG/KG), 4 DOSES PER WEEK
     Route: 058
     Dates: start: 20151002, end: 20151008
  22. TEDUGLUTIDE [Suspect]
     Active Substance: TEDUGLUTIDE
     Dosage: 2.7 MILLIGRAM, (0.03 MG/KG), 7 DOSES PER WEEK
     Route: 058
     Dates: start: 20161027, end: 201910
  23. TEDUGLUTIDE [Suspect]
     Active Substance: TEDUGLUTIDE
     Dosage: 2.7 MILLIGRAM, (0.03 MG/KG), 7 DOSES PER WEEK
     Route: 058
     Dates: start: 201907, end: 20190806
  24. TEDUGLUTIDE [Suspect]
     Active Substance: TEDUGLUTIDE
     Dosage: 2.7 MILLIGRAM, (0.03 MG/KG), 7 DOSES PER WEEK
     Route: 058
     Dates: start: 20190807, end: 20191002
  25. TEDUGLUTIDE [Suspect]
     Active Substance: TEDUGLUTIDE
     Dosage: 2.7 MILLIGRAM, (0.03 MG/KG), 7 DOSES PER WEEK
     Route: 058
     Dates: start: 20191003
  26. LOPERAMIDE [Concomitant]
     Active Substance: LOPERAMIDE
     Indication: DIARRHOEA
  27. TEDUGLUTIDE [Suspect]
     Active Substance: TEDUGLUTIDE
     Dosage: 2.0 MILLIGRAM, (0.03 MG/KG), 7 DOSES PER WEEK
     Route: 058
     Dates: start: 20151016, end: 201604
  28. TEDUGLUTIDE [Suspect]
     Active Substance: TEDUGLUTIDE
     Dosage: 2 MILLIGRAM, (0.03 MG/KG), 3 DOSES PER WEEK
     Route: 058
     Dates: start: 20150925, end: 20151001
  29. TEDUGLUTIDE [Suspect]
     Active Substance: TEDUGLUTIDE
     Dosage: 2.00 MILLIGRAM, (0.03 MG/KG), 4 DOSES PER WEEK
     Route: 058
     Dates: start: 20151009, end: 20151015
  30. TEDUGLUTIDE [Suspect]
     Active Substance: TEDUGLUTIDE
     Dosage: 2.0 MILLIGRAM, (0.03 MG/KG), 7 DOSES PER WEEK
     Route: 058
     Dates: start: 20151016, end: 201604
  31. TEDUGLUTIDE [Suspect]
     Active Substance: TEDUGLUTIDE
     Dosage: 2.5 MILLIGRAM, (0.03 MG/KG), 7 DOSES PER WEEK UNK
     Route: 058
     Dates: start: 20160419, end: 20161026
  32. TEDUGLUTIDE [Suspect]
     Active Substance: TEDUGLUTIDE
     Dosage: 2.7 MILLIGRAM, (0.03 MG/KG), 7 DOSES PER WEEK
     Route: 058
     Dates: start: 20161027, end: 201910
  33. TEDUGLUTIDE [Suspect]
     Active Substance: TEDUGLUTIDE
     Dosage: 2.7 MILLIGRAM, (0.03 MG/KG), 7 DOSES PER WEEK
     Route: 058
     Dates: start: 201907, end: 20190806
  34. TEDUGLUTIDE [Suspect]
     Active Substance: TEDUGLUTIDE
     Dosage: 2.7 MILLIGRAM, (0.03 MG/KG), 7 DOSES PER WEEK
     Route: 058
     Dates: start: 20190807, end: 20191002
  35. PENICILLIN [BENZYLPENICILLIN POTASSIUM] [Concomitant]
     Indication: RESPIRATORY TRACT INFECTION
  36. TEDUGLUTIDE [Suspect]
     Active Substance: TEDUGLUTIDE
     Dosage: 2 MILLIGRAM, (0.03 MG/KG), 3 DOSES PER WEEK
     Route: 058
     Dates: start: 20150925, end: 20151001
  37. TEDUGLUTIDE [Suspect]
     Active Substance: TEDUGLUTIDE
     Dosage: 2.00 MILLIGRAM, (0.03 MG/KG), 4 DOSES PER WEEK
     Route: 058
     Dates: start: 20151002, end: 20151008
  38. TEDUGLUTIDE [Suspect]
     Active Substance: TEDUGLUTIDE
     Dosage: 2.7 MILLIGRAM, (0.03 MG/KG), 7 DOSES PER WEEK
     Route: 058
     Dates: start: 20190807, end: 20191002
  39. MAGNESIUM [Concomitant]
     Active Substance: MAGNESIUM
     Indication: MUSCLE SPASMS
  40. TEDUGLUTIDE [Suspect]
     Active Substance: TEDUGLUTIDE
     Indication: SHORT-BOWEL SYNDROME
     Dosage: 3.8 MILLIGRAM, (0.05 MG/KG), 7 DOSES PER WEEK
     Route: 058
     Dates: start: 20150511, end: 20150911
  41. TEDUGLUTIDE [Suspect]
     Active Substance: TEDUGLUTIDE
     Indication: SHORT-BOWEL SYNDROME
     Dosage: 3.8 MILLIGRAM, (0.05 MG/KG), 7 DOSES PER WEEK
     Route: 058
     Dates: start: 20150511, end: 20150911
  42. TEDUGLUTIDE [Suspect]
     Active Substance: TEDUGLUTIDE
     Dosage: 2.00 MILLIGRAM, (0.03 MG/KG), 4 DOSES PER WEEK
     Route: 058
     Dates: start: 20150918, end: 20150924
  43. TEDUGLUTIDE [Suspect]
     Active Substance: TEDUGLUTIDE
     Dosage: 2.00 MILLIGRAM, (0.03 MG/KG), 4 DOSES PER WEEK
     Route: 058
     Dates: start: 20150918, end: 20150924
  44. TEDUGLUTIDE [Suspect]
     Active Substance: TEDUGLUTIDE
     Dosage: 2.0 MILLIGRAM, (0.03 MG/KG), 7 DOSES PER WEEK
     Route: 058
     Dates: start: 20151016, end: 201604
  45. TEDUGLUTIDE [Suspect]
     Active Substance: TEDUGLUTIDE
     Dosage: 2.00 MILLIGRAM, (0.03 MG/KG), 4 DOSES PER WEEK
     Route: 058
     Dates: start: 20151009, end: 20151015
  46. TEDUGLUTIDE [Suspect]
     Active Substance: TEDUGLUTIDE
     Dosage: 2.7 MILLIGRAM, (0.03 MG/KG), 7 DOSES PER WEEK
     Route: 058
     Dates: start: 20161027, end: 201910
  47. TEDUGLUTIDE [Suspect]
     Active Substance: TEDUGLUTIDE
     Dosage: 2.00 MILLIGRAM, (0.03 MG/KG), 4 DOSES PER WEEK
     Route: 058
     Dates: start: 20150918, end: 20150924
  48. TEDUGLUTIDE [Suspect]
     Active Substance: TEDUGLUTIDE
     Dosage: 2.0 MILLIGRAM, (0.03 MG/KG), 7 DOSES PER WEEK
     Route: 058
     Dates: start: 20151016, end: 201604
  49. TEDUGLUTIDE [Suspect]
     Active Substance: TEDUGLUTIDE
     Dosage: 2.5 MILLIGRAM, (0.03 MG/KG), 7 DOSES PER WEEK UNK
     Route: 058
     Dates: start: 20160419, end: 20161026
  50. TEDUGLUTIDE [Suspect]
     Active Substance: TEDUGLUTIDE
     Dosage: 2.7 MILLIGRAM, (0.03 MG/KG), 7 DOSES PER WEEK
     Route: 058
     Dates: start: 20161027, end: 201910
  51. TEDUGLUTIDE [Suspect]
     Active Substance: TEDUGLUTIDE
     Dosage: 2.7 MILLIGRAM, (0.03 MG/KG), 7 DOSES PER WEEK
     Route: 058
     Dates: start: 201907, end: 20190806

REACTIONS (4)
  - Diarrhoea [Recovered/Resolved]
  - Large intestine perforation [Recovered/Resolved]
  - Gastric disorder [Not Recovered/Not Resolved]
  - Colon adenoma [Recovered/Resolved]

NARRATIVE: CASE EVENT DATE: 20190301
